FAERS Safety Report 16717698 (Version 2)
Quarter: 2019Q4

REPORT INFORMATION
  Report Type: Spontaneous
  Country: US (occurrence: US)
  Receive Date: 20190819
  Receipt Date: 20191021
  Transmission Date: 20200122
  Serious: No
  Sender: FDA-Public Use
  Company Number: US-SA-2019SA228468

PATIENT
  Age: 56 Year
  Sex: Female

DRUGS (1)
  1. DUPIXENT [Suspect]
     Active Substance: DUPILUMAB
     Indication: DERMATITIS ATOPIC
     Dosage: 300 MG, QOW
     Route: 058
     Dates: start: 20190701

REACTIONS (8)
  - Skin exfoliation [Unknown]
  - Erythema [Unknown]
  - Skin burning sensation [Unknown]
  - Oral herpes [Recovering/Resolving]
  - Skin exfoliation [Unknown]
  - Skin texture abnormal [Unknown]
  - Dry skin [Unknown]
  - Lip swelling [Recovering/Resolving]

NARRATIVE: CASE EVENT DATE: 2019
